FAERS Safety Report 15725190 (Version 3)
Quarter: 2019Q1

REPORT INFORMATION
  Report Type: Report from Study
  Country: JP (occurrence: JP)
  Receive Date: 20181215
  Receipt Date: 20190301
  Transmission Date: 20190417
  Serious: Yes (Death, Hospitalization, Other)
  Sender: FDA-Public Use
  Company Number: JP-AMGEN-JPNCT2017073153

PATIENT
  Age: 85 Year
  Sex: Male

DRUGS (16)
  1. DARBEPOETIN ALFA [Suspect]
     Active Substance: DARBEPOETIN ALFA
     Dosage: 180 MUG, QWK
     Route: 058
     Dates: start: 20161208, end: 20161228
  2. DARBEPOETIN ALFA [Suspect]
     Active Substance: DARBEPOETIN ALFA
     Dosage: 240 MUG, Q2WK
     Route: 058
     Dates: start: 20170824, end: 20171019
  3. PRIMOBOLAN-DEPOT [Concomitant]
     Active Substance: METHENOLONE ENANTHATE
     Indication: MYELODYSPLASTIC SYNDROME
     Dosage: 20 MG, QD
     Route: 048
     Dates: end: 20160818
  4. PRIMOBOLAN-DEPOT [Concomitant]
     Active Substance: METHENOLONE ENANTHATE
     Dosage: 20 MG, QD
     Route: 048
     Dates: start: 20171116, end: 20181122
  5. DARBEPOETIN ALFA [Suspect]
     Active Substance: DARBEPOETIN ALFA
     Dosage: 210 MUG, QWK
     Route: 058
     Dates: start: 20170105, end: 20170316
  6. DARBEPOETIN ALFA [Suspect]
     Active Substance: DARBEPOETIN ALFA
     Dosage: 240 MUG, Q2WK
     Route: 058
     Dates: start: 20171130, end: 20171228
  7. DARBEPOETIN ALFA [Suspect]
     Active Substance: DARBEPOETIN ALFA
     Dosage: 240 MUG, Q2WK
     Route: 058
     Dates: start: 20180119, end: 20180621
  8. DARBEPOETIN ALFA [Suspect]
     Active Substance: DARBEPOETIN ALFA
     Dosage: 240 MUG, Q2WK
     Route: 058
     Dates: start: 20180629, end: 20180920
  9. DARBEPOETIN ALFA [Suspect]
     Active Substance: DARBEPOETIN ALFA
     Indication: MYELODYSPLASTIC SYNDROME
     Dosage: 240 MUG, QWK
     Route: 058
     Dates: start: 20160714, end: 20160921
  10. PRIMOBOLAN-DEPOT [Concomitant]
     Active Substance: METHENOLONE ENANTHATE
     Indication: MYELODYSPLASTIC SYNDROME
     Dosage: 20 MG, QD
     Route: 048
     Dates: end: 20160818
  11. DARBEPOETIN ALFA [Suspect]
     Active Substance: DARBEPOETIN ALFA
     Dosage: 240 MUG, QWK
     Route: 058
     Dates: start: 20160929, end: 20161020
  12. DARBEPOETIN ALFA [Suspect]
     Active Substance: DARBEPOETIN ALFA
     Dosage: 120 MUG, QWK
     Route: 058
     Dates: start: 20161102, end: 20161201
  13. DARBEPOETIN ALFA [Suspect]
     Active Substance: DARBEPOETIN ALFA
     Dosage: 240 MUG, Q2WK
     Route: 058
     Dates: start: 20170616, end: 20170727
  14. TRAZENTA [Concomitant]
     Active Substance: LINAGLIPTIN
     Indication: DIABETES MELLITUS
     Dosage: 5 MG, QD
     Route: 048
     Dates: end: 20181122
  15. DARBEPOETIN ALFA [Suspect]
     Active Substance: DARBEPOETIN ALFA
     Dosage: 240 MUG, QWK
     Route: 058
     Dates: start: 20170323, end: 20170420
  16. PRIMOBOLAN-DEPOT [Concomitant]
     Active Substance: METHENOLONE ENANTHATE
     Dosage: 20 MG, QD
     Route: 048
     Dates: start: 20171116

REACTIONS (3)
  - Chronic myelomonocytic leukaemia [Fatal]
  - Pneumonia bacterial [Recovered/Resolved]
  - Drug effect decreased [Unknown]

NARRATIVE: CASE EVENT DATE: 20180330
